FAERS Safety Report 14477443 (Version 1)
Quarter: 2018Q1

REPORT INFORMATION
  Report Type: Spontaneous
  Country: CH (occurrence: CH)
  Receive Date: 20180201
  Receipt Date: 20180201
  Transmission Date: 20180509
  Serious: No
  Sender: FDA-Public Use
  Company Number: CH-EXELIXIS-CABO-17010391

PATIENT

DRUGS (2)
  1. CABOMETYX [Suspect]
     Active Substance: CABOZANTINIB S-MALATE
     Indication: PAPILLARY RENAL CELL CARCINOMA
     Dosage: 60 MG, QD
     Route: 048
  2. CABOMETYX [Suspect]
     Active Substance: CABOZANTINIB S-MALATE
     Dosage: 40 MG, QD
     Route: 048

REACTIONS (6)
  - Paronychia [Unknown]
  - Aphthous ulcer [Unknown]
  - Gait disturbance [Unknown]
  - Wound [Unknown]
  - Lymphopenia [Unknown]
  - Diarrhoea [Unknown]
